FAERS Safety Report 9186669 (Version 1)
Quarter: 2013Q1

REPORT INFORMATION
  Report Type: Spontaneous
  Country: US (occurrence: US)
  Receive Date: 20130325
  Receipt Date: 20130325
  Transmission Date: 20140127
  Serious: No
  Sender: FDA-Public Use
  Company Number: US-GLAXOSMITHKLINE-A0975152A

PATIENT
  Age: 80 Year
  Sex: Male

DRUGS (3)
  1. RYTHMOL SR [Suspect]
     Indication: CARDIAC DISORDER
     Dosage: 325MG TWICE PER DAY
     Route: 048
  2. RYTHMOL SR [Suspect]
  3. ATENOLOL [Concomitant]

REACTIONS (2)
  - Palpitations [Recovered/Resolved]
  - Product quality issue [Unknown]
